FAERS Safety Report 13745067 (Version 1)
Quarter: 2017Q3

REPORT INFORMATION
  Report Type: Spontaneous
  Country: GB (occurrence: GB)
  Receive Date: 20170712
  Receipt Date: 20170712
  Transmission Date: 20171127
  Serious: Yes (Other)
  Sender: FDA-Public Use
  Company Number: GB-TORRENT-00015410

PATIENT
  Age: 71 Year
  Sex: Female

DRUGS (4)
  1. CLOBAZAM [Concomitant]
     Active Substance: CLOBAZAM
  2. FUROSEMIDE. [Concomitant]
     Active Substance: FUROSEMIDE
  3. LEVETIRACETAM. [Concomitant]
     Active Substance: LEVETIRACETAM
  4. DULOXETINE. [Suspect]
     Active Substance: DULOXETINE

REACTIONS (2)
  - Condition aggravated [Recovered/Resolved]
  - Seizure [Recovered/Resolved]

NARRATIVE: CASE EVENT DATE: 20170510
